FAERS Safety Report 5458640-7 (Version None)
Quarter: 2007Q3

REPORT INFORMATION
  Report Type: 
  Country: None (occurrence: None)
  Receive Date: 20070919
  Receipt Date: 20070404
  Transmission Date: 20080115
  Serious: Yes (Other)
  Sender: FDA-Public Use
  Company Number: US-ASTRAZENECA-2007UW06740

PATIENT
  Age: 48 Year
  Sex: Female

DRUGS (4)
  1. SEROQUEL [Suspect]
     Route: 048
     Dates: end: 20070402
  2. SEROQUEL [Suspect]
     Route: 048
     Dates: start: 20070403
  3. COGENTIN [Concomitant]
  4. XANAX [Concomitant]
     Dosage: 0.5 MG BID PRN

REACTIONS (1)
  - AKATHISIA [None]
